FAERS Safety Report 23414461 (Version 1)
Quarter: 2024Q1

REPORT INFORMATION
  Report Type: Spontaneous
  Country: US (occurrence: US)
  Receive Date: 20240118
  Receipt Date: 20240118
  Transmission Date: 20240409
  Serious: No
  Sender: FDA-Public Use
  Company Number: US-PRINSTON PHARMACEUTICAL INC.-2023PRN00159

PATIENT
  Sex: Female
  Weight: 70.295 kg

DRUGS (2)
  1. RISPERIDONE [Suspect]
     Active Substance: RISPERIDONE
     Indication: Schizoaffective disorder
     Dosage: 0.5 MG OR 1 MG, 1X/DAY
     Dates: start: 2023, end: 20230412
  2. UNSPECIFIED BENZOS [Concomitant]
     Dosage: UNK

REACTIONS (5)
  - Poisoning [Recovering/Resolving]
  - Formication [Recovering/Resolving]
  - Drug ineffective [Recovered/Resolved]
  - Unevaluable event [Recovering/Resolving]
  - Prescription drug used without a prescription [Recovered/Resolved]

NARRATIVE: CASE EVENT DATE: 20230101
